FAERS Safety Report 4332615-3 (Version None)
Quarter: 2004Q2

REPORT INFORMATION
  Report Type: 
  Country: None (occurrence: None)
  Receive Date: 20040401
  Receipt Date: 20040322
  Transmission Date: 20050107
  Serious: Yes (Other)
  Sender: FDA-Public Use
  Company Number: 2004204588GB

PATIENT
  Age: 58 Year
  Sex: Male

DRUGS (1)
  1. CAVERJECT [Suspect]
     Indication: ERECTILE DYSFUNCTION
     Dosage: UNK, UNK, INT CORP CAVERN

REACTIONS (1)
  - DEEP VEIN THROMBOSIS [None]
